FAERS Safety Report 12479415 (Version 1)
Quarter: 2016Q2

REPORT INFORMATION
  Report Type: Other
  Country: GB (occurrence: GB)
  Receive Date: 20160620
  Receipt Date: 20160620
  Transmission Date: 20160815
  Serious: Yes (Hospitalization)
  Sender: FDA-Public Use
  Company Number: GB-CIPLA LTD.-2016GB06992

PATIENT

DRUGS (18)
  1. WARFARIN [Suspect]
     Active Substance: WARFARIN
     Dosage: UNK
     Route: 065
  2. DULOXETINE. [Concomitant]
     Active Substance: DULOXETINE
     Dosage: 30 MG, QD
     Route: 065
  3. SIMVASTATIN. [Concomitant]
     Active Substance: SIMVASTATIN
     Dosage: 20 MG, QD, AT NIGHT
     Route: 065
  4. GABAPENTIN. [Concomitant]
     Active Substance: GABAPENTIN
     Dosage: 50 MG, BID, ACUTE - FOR 4 DAYS
     Route: 065
     Dates: start: 20160219
  5. PARACETAMOL [Concomitant]
     Active Substance: ACETAMINOPHEN
     Dosage: 1 G, QID, ACUTE - FOR 5 DAYS
     Route: 065
     Dates: start: 20160219
  6. DOXAZOSIN [Concomitant]
     Active Substance: DOXAZOSIN\DOXAZOSIN MESYLATE
     Dosage: 2 MG, QD
     Route: 065
  7. FUROSEMIDE. [Concomitant]
     Active Substance: FUROSEMIDE
     Dosage: 20 MG, QD, EACH MORNING
     Route: 065
  8. GLICLAZIDE [Concomitant]
     Active Substance: GLICLAZIDE
     Dosage: 40 MG, BID, REDUCING LEVEL ADJUSTMENTS
     Route: 065
  9. SENNA [Concomitant]
     Active Substance: SENNA LEAF\SENNOSIDES\SENNOSIDES A AND B
     Dosage: 15 MG, ACUTE - FOR 6 DAYS
     Route: 065
     Dates: start: 20160219
  10. OXYCODONE [Concomitant]
     Active Substance: OXYCODONE
     Dosage: 5 MG, BID, ACUTE - FOR 4 DAYS. MODIFIED-RELEASE
     Route: 065
     Dates: start: 20160219
  11. DARBEPOETIN ALFA [Concomitant]
     Active Substance: DARBEPOETIN ALFA
     Dosage: 30 UNK, ONCE IN 2 WEEKS, WEDNESDAY
     Route: 065
  12. DOCUSATE [Concomitant]
     Active Substance: DOCUSATE
     Dosage: 200 MG, BID, ACUTE - FOR 7 DAYS
     Route: 065
     Dates: start: 20160219
  13. ADCAL-D3 [Concomitant]
     Active Substance: CALCIUM CARBONATE\CHOLECALCIFEROL
     Dosage: 1 DF, BID, TUTTI-FRUTTI
     Route: 065
  14. ATENOLOL. [Concomitant]
     Active Substance: ATENOLOL
     Dosage: 25 MG, QD
     Route: 065
  15. PERINDOPRIL [Concomitant]
     Active Substance: PERINDOPRIL
     Dosage: 8 MG, QD
     Route: 065
  16. ENOXAPARIN [Concomitant]
     Active Substance: ENOXAPARIN
     Dosage: 50 MG, BID, ACUTE - FOR 5 DAYS
     Route: 065
     Dates: start: 20160219
  17. DALTEPARIN [Suspect]
     Active Substance: DALTEPARIN
     Dosage: 10,000 UNITS/0.4 ML ONE TO BE ADMINISTERED ON 13TH, 14TH AND 15TH FEB
     Route: 065
     Dates: start: 20160213
  18. DIGOXIN. [Concomitant]
     Active Substance: DIGOXIN
     Dosage: 62.5 UNK, QD
     Route: 065

REACTIONS (6)
  - Gastrointestinal haemorrhage [Unknown]
  - Haematemesis [Unknown]
  - Melaena [Unknown]
  - Gastric ulcer [Unknown]
  - Oesophageal ulcer [Unknown]
  - Oesophagitis [Unknown]
